FAERS Safety Report 24428162 (Version 2)
Quarter: 2024Q4

REPORT INFORMATION
  Report Type: Spontaneous
  Country: US (occurrence: US)
  Receive Date: 20241011
  Receipt Date: 20241011
  Transmission Date: 20250114
  Serious: Yes (Other)
  Sender: AMGEN
  Company Number: US-AMGEN-USASP2024199148

PATIENT
  Age: 66 Year
  Sex: Male

DRUGS (3)
  1. ADALIMUMAB [Suspect]
     Active Substance: ADALIMUMAB
     Indication: Acne conglobata
     Dosage: UNK
     Route: 065
  2. PREDNISONE [Suspect]
     Active Substance: PREDNISONE
     Indication: Acne conglobata
     Dosage: 40 MILLIGRAM, QD
     Route: 065
  3. DOXYCYCLINE [Concomitant]
     Active Substance: DOXYCYCLINE
     Indication: Acne conglobata
     Dosage: UNK
     Route: 065

REACTIONS (4)
  - Squamous cell carcinoma of skin [Unknown]
  - Beta haemolytic streptococcal infection [Unknown]
  - Acne conglobata [Unknown]
  - Off label use [Unknown]
